FAERS Safety Report 6048278-5 (Version None)
Quarter: 2009Q1

REPORT INFORMATION
  Report Type: 
  Country: None (occurrence: None)
  Receive Date: 20090122
  Receipt Date: 20090122
  Transmission Date: 20090719
  Serious: No
  Sender: FDA-Public Use
  Company Number: None

PATIENT
  Sex: Female

DRUGS (3)
  1. HYDROCODONE BITARTRATE [Suspect]
     Indication: PAIN
     Dosage: P.O.
     Route: 048
     Dates: start: 20040301
  2. HYDROCODONE BITARTRATE [Suspect]
     Indication: SPINAL COLUMN STENOSIS
     Dosage: P.O.
     Route: 048
     Dates: start: 20040301
  3. VICODIN EC [Suspect]

REACTIONS (2)
  - MENTAL STATUS CHANGES [None]
  - PRODUCT QUALITY ISSUE [None]
